FAERS Safety Report 22049615 (Version 1)
Quarter: 2023Q1

REPORT INFORMATION
  Report Type: Other
  Country: US (occurrence: None)
  Receive Date: 20230301
  Receipt Date: 20230301
  Transmission Date: 20230417
  Serious: Yes (Other)
  Sender: FDA-Public Use
  Company Number: US-ROCHE-3290052

PATIENT
  Age: 65 Year
  Sex: Female
  Weight: 104.42 kg

DRUGS (6)
  1. OCREVUS [Suspect]
     Active Substance: OCRELIZUMAB
     Indication: Relapsing multiple sclerosis
     Dosage: DATE OF TREATMENT: 04/MAY/2020
     Route: 042
  2. GABAPENTIN [Concomitant]
     Active Substance: GABAPENTIN
  3. BACTRIM [Concomitant]
     Active Substance: SULFAMETHOXAZOLE\TRIMETHOPRIM
  4. BIOTIN [Concomitant]
     Active Substance: BIOTIN
  5. AMPYRA [Concomitant]
     Active Substance: DALFAMPRIDINE
  6. ALPHA LIPOIC ACID [Concomitant]
     Active Substance: .ALPHA.-LIPOIC ACID

REACTIONS (9)
  - Back pain [Unknown]
  - Muscle twitching [Unknown]
  - Fine motor skill dysfunction [Unknown]
  - Hypoaesthesia [Unknown]
  - Gait disturbance [Unknown]
  - Muscular weakness [Unknown]
  - Paraesthesia [Unknown]
  - Micturition urgency [Unknown]
  - Urinary retention [Unknown]
